FAERS Safety Report 4401442-0 (Version None)
Quarter: 2004Q3

REPORT INFORMATION
  Report Type: 
  Country: None (occurrence: None)
  Receive Date: 20040907
  Receipt Date: 20040507
  Transmission Date: 20050211
  Serious: No
  Sender: FDA-Public Use
  Company Number: US-BRISTOL-MYERS SQUIBB COMPANY-12581898

PATIENT
  Sex: Male

DRUGS (1)
  1. COUMADIN [Suspect]
     Dosage: INCREASED TO 15MG DAILY
     Route: 048

REACTIONS (2)
  - DRUG INEFFECTIVE [None]
  - FOOD INTERACTION [None]
